FAERS Safety Report 15350405 (Version 1)
Quarter: 2018Q4

REPORT INFORMATION
  Report Type: Spontaneous
  Country: US (occurrence: US)
  Receive Date: 20180905
  Receipt Date: 20180905
  Transmission Date: 20190204
  Serious: Yes (Death, Other)
  Sender: FDA-Public Use
  Company Number: US-STRIDES ARCOLAB LIMITED-2018SP007389

PATIENT

DRUGS (2)
  1. METOPROLOL. [Suspect]
     Active Substance: METOPROLOL
     Indication: PRODUCT USED FOR UNKNOWN INDICATION
     Dosage: UNK
     Route: 065
  2. AMLODIPINE [Suspect]
     Active Substance: AMLODIPINE BESYLATE
     Indication: PRODUCT USED FOR UNKNOWN INDICATION
     Dosage: UNK
     Route: 065

REACTIONS (10)
  - Toxicity to various agents [Fatal]
  - Hypotension [Unknown]
  - Hepatotoxicity [Unknown]
  - Coma [Unknown]
  - Electrocardiogram QRS complex prolonged [Unknown]
  - Atrioventricular block [Unknown]
  - Bradycardia [Unknown]
  - Metabolic acidosis [Unknown]
  - Depressed level of consciousness [Unknown]
  - Acute lung injury [Unknown]
